FAERS Safety Report 8118047-0 (Version None)
Quarter: 2012Q1

REPORT INFORMATION
  Report Type: 
  Country: None (occurrence: None)
  Receive Date: 20120207
  Receipt Date: 20120202
  Transmission Date: 20120608
  Serious: No
  Sender: FDA-Public Use
  Company Number: US-PFIZER INC-2012029098

PATIENT
  Sex: Male
  Weight: 97.959 kg

DRUGS (5)
  1. PROTONIX [Suspect]
     Dosage: 20 MG, 2X/DAY
     Dates: start: 20110901
  2. PAXIL [Concomitant]
     Indication: CARDIAC DISORDER
     Dosage: 10 MG, 2X/DAY
     Dates: start: 20110901
  3. TOPROL-XL [Concomitant]
     Dosage: 25 MG, 2X/DAY
     Dates: start: 20110901
  4. WARFARIN SODIUM [Concomitant]
     Indication: ANTICOAGULANT THERAPY
     Dosage: 5 MG BY SPLITTING IN HALF, 1X/DAY
     Dates: start: 20110901
  5. LOPRESSOR [Concomitant]
     Dosage: 25 MG, 2X/DAY
     Dates: start: 20110901

REACTIONS (3)
  - HAEMOPTYSIS [None]
  - NAUSEA [None]
  - ASTHENIA [None]
